FAERS Safety Report 20075834 (Version 2)
Quarter: 2022Q1

REPORT INFORMATION
  Report Type: Spontaneous
  Country: US (occurrence: US)
  Receive Date: 20211116
  Receipt Date: 20220120
  Transmission Date: 20220424
  Serious: Yes (Other)
  Sender: FDA-Public Use
  Company Number: US-NOVOPROD-841589

PATIENT
  Age: 70 Year
  Sex: Female

DRUGS (6)
  1. OZEMPIC [Suspect]
     Active Substance: SEMAGLUTIDE
     Indication: Product used for unknown indication
     Dosage: 1 MG, QW
     Route: 058
     Dates: start: 2018
  2. TRESIBA [Suspect]
     Active Substance: INSULIN DEGLUDEC
     Dosage: 15 IU
     Route: 058
     Dates: start: 2021
  3. TRESIBA [Suspect]
     Active Substance: INSULIN DEGLUDEC
     Indication: Product used for unknown indication
     Dosage: 88 IU
     Route: 058
     Dates: start: 2018, end: 2021
  4. HUMULIN R [Suspect]
     Active Substance: INSULIN HUMAN
     Dosage: 5 IU
     Route: 058
     Dates: start: 2021
  5. HUMULIN R [Suspect]
     Active Substance: INSULIN HUMAN
     Indication: Product used for unknown indication
     Dosage: 30 IU
     Route: 058
     Dates: start: 2018, end: 2021
  6. METFORMIN [Concomitant]
     Active Substance: METFORMIN HYDROCHLORIDE
     Indication: Product used for unknown indication
     Dosage: UNK
     Route: 048
     Dates: start: 2018

REACTIONS (3)
  - Shock hypoglycaemic [Recovered/Resolved]
  - Glycosylated haemoglobin increased [Unknown]
  - Blood glucose increased [Recovered/Resolved]

NARRATIVE: CASE EVENT DATE: 20210701
